FAERS Safety Report 8438661-2 (Version None)
Quarter: 2012Q2

REPORT INFORMATION
  Report Type: 
  Country: None (occurrence: None)
  Receive Date: 20120615
  Receipt Date: 20120611
  Transmission Date: 20120825
  Serious: No
  Sender: FDA-Public Use
  Company Number: US-PFIZER INC-2012140376

PATIENT
  Sex: Male
  Weight: 75 kg

DRUGS (1)
  1. ALAVERT [Suspect]
     Indication: HYPERSENSITIVITY
     Dosage: UNK, 1X/DAY
     Route: 048
     Dates: start: 20120601

REACTIONS (3)
  - DRUG EFFECT DECREASED [None]
  - RHINORRHOEA [None]
  - IRRITABILITY [None]
